FAERS Safety Report 8723522 (Version 2)
Quarter: 2013Q4

REPORT INFORMATION
  Report Type: Spontaneous
  Country: US (occurrence: US)
  Receive Date: 20120814
  Receipt Date: 20131101
  Transmission Date: 20140711
  Serious: No
  Sender: FDA-Public Use
  Company Number: US-009507513-1208USA002653

PATIENT
  Sex: Female

DRUGS (2)
  1. MIRALAX [Suspect]
     Indication: PRODUCT USED FOR UNKNOWN INDICATION
     Dosage: UNK, HS
     Route: 048
     Dates: start: 20120617
  2. MIRALAX [Suspect]
     Dosage: UNK, ONCE
     Route: 048
     Dates: start: 20120618

REACTIONS (1)
  - Inappropriate schedule of drug administration [Unknown]
